FAERS Safety Report 8756245 (Version 1)
Quarter: 2012Q4

REPORT INFORMATION
  Report Type: 
  Country: BR (occurrence: BR)
  Receive Date: 20120828
  Receipt Date: 20120828
  Transmission Date: 20130627
  Serious: Yes (Other)
  Sender: FDA-Public Use
  Company Number: PHHY2012BR073205

PATIENT
  Sex: Female

DRUGS (3)
  1. DIOVAN AMLO [Suspect]
     Indication: HYPERTENSION
     Dosage: 1 DF (160/5mg) UNK
  2. CARDICORON [Concomitant]
     Indication: CARDIAC DISORDER
     Dosage: 200 mg, QD
  3. VENALOT [Concomitant]
     Indication: CARDIOVASCULAR DISORDER
     Dosage: UNK DF, BID

REACTIONS (2)
  - Breast cancer [Recovering/Resolving]
  - Obesity [Recovering/Resolving]
